FAERS Safety Report 18472374 (Version 8)
Quarter: 2022Q2

REPORT INFORMATION
  Report Type: Spontaneous
  Country: US (occurrence: US)
  Receive Date: 20201106
  Receipt Date: 20220617
  Transmission Date: 20220720
  Serious: Yes (Other)
  Sender: FDA-Public Use
  Company Number: US-JNJFOC-20201046993

PATIENT
  Age: 53 Year
  Sex: Female

DRUGS (36)
  1. ELMIRON [Suspect]
     Active Substance: PENTOSAN POLYSULFATE SODIUM
     Indication: Cystitis interstitial
     Dosage: 100 MG 90 PILLS FOR 30 DAYS
     Route: 048
     Dates: start: 2007, end: 201108
  2. ELMIRON [Suspect]
     Active Substance: PENTOSAN POLYSULFATE SODIUM
     Indication: Pain
     Dosage: 100 MG, 270 PILLS FOR 90 DAYS
     Route: 048
     Dates: start: 201110, end: 201112
  3. ELMIRON [Suspect]
     Active Substance: PENTOSAN POLYSULFATE SODIUM
     Dosage: 100 MG, 270 PILLS FOR 90 DAYS
     Route: 048
     Dates: start: 201203, end: 201311
  4. ELMIRON [Suspect]
     Active Substance: PENTOSAN POLYSULFATE SODIUM
     Route: 048
     Dates: start: 201702
  5. ELMIRON [Suspect]
     Active Substance: PENTOSAN POLYSULFATE SODIUM
     Dosage: 100 MG, 270 PILLS?100 MG 2-3 TIMES DAILY
     Route: 048
     Dates: start: 201711, end: 202005
  6. ELMIRON [Suspect]
     Active Substance: PENTOSAN POLYSULFATE SODIUM
     Route: 048
     Dates: start: 202005, end: 202006
  7. ELMIRON [Suspect]
     Active Substance: PENTOSAN POLYSULFATE SODIUM
     Route: 048
     Dates: start: 2007, end: 201711
  8. ELMIRON [Suspect]
     Active Substance: PENTOSAN POLYSULFATE SODIUM
     Route: 048
     Dates: start: 20120323, end: 20150625
  9. SIMVASTATIN [Concomitant]
     Active Substance: SIMVASTATIN
     Indication: Blood cholesterol
     Route: 065
     Dates: start: 20110116, end: 20110616
  10. SIMVASTATIN [Concomitant]
     Active Substance: SIMVASTATIN
     Indication: Cardiac disorder
     Route: 065
     Dates: start: 20170217, end: 20190826
  11. SIMVASTATIN [Concomitant]
     Active Substance: SIMVASTATIN
     Indication: Dyspepsia
  12. PREMARIN [Concomitant]
     Active Substance: ESTROGENS, CONJUGATED
     Indication: Menopause
     Route: 065
     Dates: start: 20110123, end: 20131215
  13. NEXIUM [Concomitant]
     Active Substance: ESOMEPRAZOLE MAGNESIUM
     Indication: Gastric disorder
     Route: 065
     Dates: start: 20110109, end: 20110620
  14. SYNTHROID [Concomitant]
     Active Substance: LEVOTHYROXINE SODIUM
     Indication: Hypothyroidism
     Route: 065
     Dates: start: 20110123, end: 20110616
  15. IPRATROPIUM [Concomitant]
     Active Substance: IPRATROPIUM
     Indication: Wheezing
     Route: 065
     Dates: start: 20110112, end: 20130215
  16. IPRATROPIUM [Concomitant]
     Active Substance: IPRATROPIUM
     Indication: Chest discomfort
  17. IPRATROPIUM [Concomitant]
     Active Substance: IPRATROPIUM
     Indication: Cough
  18. IPRATROPIUM [Concomitant]
     Active Substance: IPRATROPIUM
     Indication: Dyspnoea
  19. LEVOCETIRIZINE [Concomitant]
     Active Substance: LEVOCETIRIZINE
     Indication: Rhinorrhoea
     Route: 065
     Dates: start: 20110110, end: 20110620
  20. LEVOCETIRIZINE [Concomitant]
     Active Substance: LEVOCETIRIZINE
     Indication: Sneezing
  21. LEVOCETIRIZINE [Concomitant]
     Active Substance: LEVOCETIRIZINE
     Indication: Erythema
  22. LEVOCETIRIZINE [Concomitant]
     Active Substance: LEVOCETIRIZINE
     Indication: Pruritus
  23. TOBRAMYCIN + DEXAMETHASONE CELSUS [Concomitant]
     Indication: Infection
     Route: 065
     Dates: start: 20110429, end: 20121206
  24. FUROSEMIDE [Concomitant]
     Active Substance: FUROSEMIDE
     Indication: Hypertension
     Route: 065
     Dates: start: 20110613, end: 20120324
  25. FUROSEMIDE [Concomitant]
     Active Substance: FUROSEMIDE
     Route: 065
     Dates: start: 20180513, end: 20191104
  26. FLUCONAZOLE [Concomitant]
     Active Substance: FLUCONAZOLE
     Indication: Fungal infection
  27. TERCONAZOLE [Concomitant]
     Active Substance: TERCONAZOLE
     Indication: Fungal infection
     Route: 065
     Dates: start: 20111018, end: 20130627
  28. PROMETHAZINE [Concomitant]
     Active Substance: PROMETHAZINE HYDROCHLORIDE
     Indication: Anaphylactic reaction
     Route: 065
     Dates: start: 20120104, end: 20130220
  29. FLUTICASONE [Concomitant]
     Active Substance: FLUTICASONE
     Indication: Rhinitis
     Route: 065
     Dates: start: 20121109, end: 20131020
  30. CEFDINIR [Concomitant]
     Active Substance: CEFDINIR
     Indication: Bacterial infection
     Route: 065
     Dates: start: 20110608, end: 20130109
  31. AMOXICILLIN [Concomitant]
     Active Substance: AMOXICILLIN
     Indication: Bacterial infection
     Route: 065
     Dates: start: 20120106, end: 20130509
  32. LORAZEPAM [Concomitant]
     Active Substance: LORAZEPAM
     Indication: Anxiety
     Route: 065
     Dates: start: 20130408, end: 20130815
  33. SYNTHROID [Concomitant]
     Active Substance: LEVOTHYROXINE SODIUM
     Indication: Hypothyroidism
     Route: 065
     Dates: start: 20170220, end: 20190826
  34. OMEPRAZOLE [Concomitant]
     Active Substance: OMEPRAZOLE
     Indication: Dyspepsia
     Route: 065
     Dates: start: 20170302, end: 20200127
  35. LASIX [Concomitant]
     Active Substance: FUROSEMIDE
     Indication: Oedema
     Route: 065
     Dates: start: 20180221, end: 20200123
  36. SINGULAIR [Concomitant]
     Active Substance: MONTELUKAST SODIUM
     Indication: Asthma
     Route: 065

REACTIONS (4)
  - Dry age-related macular degeneration [Unknown]
  - Neovascular age-related macular degeneration [Recovering/Resolving]
  - Off label use [Unknown]
  - Product use issue [Unknown]

NARRATIVE: CASE EVENT DATE: 20080801
